FAERS Safety Report 23429476 (Version 1)
Quarter: 2024Q1

REPORT INFORMATION
  Report Type: Spontaneous
  Country: US (occurrence: US)
  Receive Date: 20240122
  Receipt Date: 20240122
  Transmission Date: 20240409
  Serious: Yes (Other)
  Sender: FDA-Public Use
  Company Number: US-PFIZER INC-202400017496

PATIENT
  Age: 77 Year
  Sex: Female

DRUGS (2)
  1. XELJANZ XR [Suspect]
     Active Substance: TOFACITINIB CITRATE
     Dosage: 11 MG, TAKE 1 TABLET BY MOUTH ONCE DAILY
     Route: 048
  2. XELJANZ XR [Suspect]
     Active Substance: TOFACITINIB CITRATE
     Dosage: 11 MG, TAKE 1 TABLET BY MOUTH ONCE DAILY
     Route: 048

REACTIONS (4)
  - Knee arthroplasty [Unknown]
  - Spinal osteoarthritis [Unknown]
  - Animal bite [Unknown]
  - Rotator cuff syndrome [Not Recovered/Not Resolved]
